FAERS Safety Report 23382823 (Version 1)
Quarter: 2024Q1

REPORT INFORMATION
  Report Type: Spontaneous
  Country: US (occurrence: US)
  Receive Date: 20240109
  Receipt Date: 20240109
  Transmission Date: 20240410
  Serious: Yes (Other)
  Sender: FDA-Public Use
  Company Number: US-OCULAR THERAPEUTIX-2023OCX00006

PATIENT
  Age: 26 Year
  Sex: Female
  Weight: 86.1 kg

DRUGS (2)
  1. DEXTENZA [Suspect]
     Active Substance: DEXAMETHASONE
     Indication: Photorefractive keratectomy
     Dosage: 0.4 MG, INSERTED IN LEFT PUNCTUM AND RIGHT PUNCTUM
     Dates: start: 20221129
  2. REFRESH TEARS [Concomitant]
     Active Substance: CARBOXYMETHYLCELLULOSE SODIUM
     Dosage: EVERYONE 1-2 HOURS AS NEEDED IN BOTH EYES

REACTIONS (4)
  - Anterior chamber inflammation [Recovered/Resolved]
  - Ocular discomfort [Recovered/Resolved]
  - Intraocular pressure increased [Recovered/Resolved]
  - Iritis [Recovered/Resolved]

NARRATIVE: CASE EVENT DATE: 20230110
